FAERS Safety Report 13181020 (Version 1)
Quarter: 2017Q1

REPORT INFORMATION
  Report Type: Spontaneous
  Country: US (occurrence: US)
  Receive Date: 20170202
  Receipt Date: 20170202
  Transmission Date: 20170428
  Serious: No
  Sender: FDA-Public Use
  Company Number: US-SMITH AND NEPHEW, INC-2016SMT00302

PATIENT
  Age: 79 Year
  Sex: Female
  Weight: 87.98 kg

DRUGS (9)
  1. REGRANEX [Suspect]
     Active Substance: BECAPLERMIN
     Indication: WOUND
     Dosage: UNK UNK, 1X/DAY
     Route: 061
     Dates: start: 20160301, end: 20160325
  2. LOSARTAN POTASSIUM. [Concomitant]
     Active Substance: LOSARTAN POTASSIUM
     Dosage: 50 MG, 1X/DAY
  3. LEVOTHYROXINE SODIUM. [Concomitant]
     Active Substance: LEVOTHYROXINE SODIUM
     Dosage: 50 ?G, 1X/DAY
  4. TYLENOL W/ CODEINE NO. 3 [Concomitant]
     Dosage: UNK, AS NEEDED
  5. FERROUS SULFATE. [Concomitant]
     Active Substance: FERROUS SULFATE
     Dosage: UNK, 1X/DAY
  6. POTASSIUM [Concomitant]
     Active Substance: POTASSIUM
     Dosage: UNK, AS NEEDED
  7. CLOPIDOGREL BISULFATE. [Concomitant]
     Active Substance: CLOPIDOGREL BISULFATE
     Dosage: 75 MG, 1X/DAY
  8. BABY ASPIRIN [Concomitant]
     Active Substance: ASPIRIN
     Dosage: UNK, 1X/DAY
  9. LASIX [Concomitant]
     Active Substance: FUROSEMIDE
     Dosage: 40 MG, AS NEEDED

REACTIONS (4)
  - Application site pain [Recovering/Resolving]
  - Wound complication [Unknown]
  - Application site discharge [Unknown]
  - Off label use [Unknown]

NARRATIVE: CASE EVENT DATE: 201603
